FAERS Safety Report 6895472 (Version 5)
Quarter: 2012Q4

REPORT INFORMATION
  Report Type: 
  Country: US (occurrence: US)
  Receive Date: 20090129
  Receipt Date: 20121101
  Transmission Date: 20130627
  Serious: Yes (Hospitalization, Other)
  Sender: FDA-Public Use
  Company Number: US-BIOGENIDEC-2009BI002668

PATIENT
  Age: 29 None
  Sex: Female

DRUGS (3)
  1. AVONEX [Suspect]
     Indication: MULTIPLE SCLEROSIS
     Route: 030
     Dates: start: 20070518, end: 20081001
  2. AVONEX [Suspect]
     Indication: MULTIPLE SCLEROSIS
     Route: 030
     Dates: start: 20090116
  3. AVONEX [Suspect]
     Indication: MULTIPLE SCLEROSIS
     Route: 030
     Dates: start: 20120202

REACTIONS (5)
  - Cerebral haemorrhage [Recovered/Resolved]
  - Cerebrovascular arteriovenous malformation [Recovered/Resolved]
  - Petit mal epilepsy [Not Recovered/Not Resolved]
  - Post procedural complication [Not Recovered/Not Resolved]
  - Memory impairment [Not Recovered/Not Resolved]
